FAERS Safety Report 21643537 (Version 2)
Quarter: 2022Q4

REPORT INFORMATION
  Report Type: Spontaneous
  Country: FR (occurrence: FR)
  Receive Date: 20221125
  Receipt Date: 20221201
  Transmission Date: 20230112
  Serious: Yes (Life-Threatening)
  Sender: FDA-Public Use
  Company Number: FR-RENAUDINFR-2022000986

PATIENT
  Age: 30 Year
  Sex: Female
  Weight: 60 kg

DRUGS (10)
  1. MORPHINE SULFATE [Suspect]
     Active Substance: MORPHINE SULFATE
     Indication: Spinal anaesthesia
     Dosage: 100 MICROGRAM (1 TOTAL)
     Route: 065
     Dates: start: 20220912, end: 20220912
  2. MORPHINE SULFATE [Suspect]
     Active Substance: MORPHINE SULFATE
     Indication: Caesarean section
  3. EPHEDRINE [Suspect]
     Active Substance: EPHEDRINE
     Indication: Hypotension
     Dosage: UNKNOWN
     Route: 065
     Dates: start: 20220912, end: 20220912
  4. SUFENTA [Suspect]
     Active Substance: SUFENTANIL CITRATE
     Indication: Spinal anaesthesia
     Dosage: 2.5 MICROGRAM (1 TOTAL)
     Route: 065
     Dates: start: 20220912, end: 20220912
  5. SUFENTA [Suspect]
     Active Substance: SUFENTANIL CITRATE
     Indication: Caesarean section
  6. PHENYLEPHRINE HYDROCHLORIDE [Suspect]
     Active Substance: PHENYLEPHRINE HYDROCHLORIDE
     Indication: Hypotension
     Dosage: UNKNOWN
     Route: 042
     Dates: start: 20220912, end: 20220912
  7. PHENYLEPHRINE HYDROCHLORIDE [Suspect]
     Active Substance: PHENYLEPHRINE HYDROCHLORIDE
     Dosage: UNKNOWN
     Route: 042
     Dates: start: 20220912, end: 20220912
  8. PHENYLEPHRINE HYDROCHLORIDE [Suspect]
     Active Substance: PHENYLEPHRINE HYDROCHLORIDE
     Dosage: 50 MICROGRAM (1 TOTAL)
     Route: 042
     Dates: start: 20220912, end: 20220912
  9. BUPIVACAINE [Suspect]
     Active Substance: BUPIVACAINE
     Indication: Spinal anaesthesia
     Dosage: 10 MILLIGRAM (1 TOTAL)
     Route: 065
     Dates: start: 20220912, end: 20220912
  10. BUPIVACAINE [Suspect]
     Active Substance: BUPIVACAINE
     Indication: Caesarean section

REACTIONS (6)
  - Bradycardia [Recovered/Resolved]
  - Chest discomfort [Recovered/Resolved]
  - Hypertension [Recovered/Resolved]
  - Headache [Recovered/Resolved]
  - Ventricular extrasystoles [Recovered/Resolved]
  - Maternal exposure during delivery [Unknown]

NARRATIVE: CASE EVENT DATE: 20220912
